FAERS Safety Report 9247815 (Version 3)
Quarter: 2013Q3

REPORT INFORMATION
  Report Type: Spontaneous
  Country: US (occurrence: US)
  Receive Date: 20130423
  Receipt Date: 20130725
  Transmission Date: 20140515
  Serious: Yes (Hospitalization, Other)
  Sender: FDA-Public Use
  Company Number: US-VERTEX PHARMACEUTICALS INC.-2013-005222

PATIENT
  Age: 54 Year
  Sex: Male
  Weight: 86 kg

DRUGS (3)
  1. INCIVEK [Suspect]
     Indication: HEPATITIS C
     Dosage: 750 MG, TID
     Route: 048
     Dates: start: 20130404, end: 20130426
  2. RIBAVIRIN [Suspect]
     Indication: HEPATITIS C
     Dosage: 3 DF, BID
     Dates: start: 20130404, end: 20130426
  3. PEGASYS [Suspect]
     Indication: HEPATITIS C
     Dosage: 180 ?G, QW
     Route: 058
     Dates: start: 20130404, end: 20130426

REACTIONS (6)
  - White blood cell count decreased [Not Recovered/Not Resolved]
  - Eye swelling [Unknown]
  - Rash generalised [Not Recovered/Not Resolved]
  - Blister [Not Recovered/Not Resolved]
  - Skin burning sensation [Not Recovered/Not Resolved]
  - Platelet count decreased [Not Recovered/Not Resolved]
